FAERS Safety Report 14528601 (Version 2)
Quarter: 2018Q1

REPORT INFORMATION
  Report Type: Spontaneous
  Country: IT (occurrence: IT)
  Receive Date: 20180214
  Receipt Date: 20180314
  Transmission Date: 20180509
  Serious: Yes (Hospitalization)
  Sender: FDA-Public Use
  Company Number: IT-SUN PHARMACEUTICAL INDUSTRIES LTD-2018RR-163215

PATIENT
  Age: 45 Year
  Sex: Male

DRUGS (2)
  1. LANSOPRAZOLE. [Suspect]
     Active Substance: LANSOPRAZOLE
     Indication: DRUG ABUSE
     Dosage: 4 DF, TOTAL
     Route: 048
  2. DILTIAZEM. [Suspect]
     Active Substance: DILTIAZEM
     Indication: DRUG ABUSE
     Dosage: 17 DF, UNK
     Route: 048

REACTIONS (3)
  - Infected bite [Unknown]
  - Nausea [Unknown]
  - Drug abuse [Unknown]

NARRATIVE: CASE EVENT DATE: 20160906
